FAERS Safety Report 15305314 (Version 1)
Quarter: 2018Q3

REPORT INFORMATION
  Report Type: Spontaneous
  Country: FR (occurrence: FR)
  Receive Date: 20180822
  Receipt Date: 20180822
  Transmission Date: 20181010
  Serious: Yes (Death)
  Sender: FDA-Public Use
  Company Number: FR-TEVA-2018-FR-946678

PATIENT
  Age: 40 Year
  Sex: Male

DRUGS (2)
  1. TRAMADOL (CHLORHYDRATE DE) [Suspect]
     Active Substance: TRAMADOL HYDROCHLORIDE
     Indication: PRODUCT ORIGIN UNKNOWN
     Route: 065
     Dates: end: 2016
  2. ALPRAZOLAM. [Suspect]
     Active Substance: ALPRAZOLAM
     Indication: PRODUCT ORIGIN UNKNOWN
     Route: 065
     Dates: end: 2016

REACTIONS (2)
  - Death [Fatal]
  - Death [Fatal]

NARRATIVE: CASE EVENT DATE: 2016
